FAERS Safety Report 10146330 (Version 1)
Quarter: 2014Q2

REPORT INFORMATION
  Report Type: Spontaneous
  Country: US (occurrence: None)
  Receive Date: 20140430
  Receipt Date: 20140430
  Transmission Date: 20141212
  Serious: Yes (Other)
  Sender: FDA-Public Use
  Company Number: None

PATIENT
  Age: 61 Year
  Sex: Male
  Weight: 81.65 kg

DRUGS (2)
  1. AVELOX 400 MG [Suspect]
     Indication: ASTHMA
     Dosage: 2 PILLS TWICE DAILY TAKEN BY MOUTH
     Route: 048
     Dates: start: 20040425, end: 20140428
  2. AVELOX 400 MG [Suspect]
     Indication: PNEUMONIA
     Dosage: 2 PILLS TWICE DAILY TAKEN BY MOUTH
     Route: 048
     Dates: start: 20040425, end: 20140428

REACTIONS (4)
  - Burning sensation [None]
  - Erythema [None]
  - Oropharyngeal pain [None]
  - Vision blurred [None]
